FAERS Safety Report 9890643 (Version 1)
Quarter: 2014Q1

REPORT INFORMATION
  Report Type: Spontaneous
  Country: US (occurrence: US)
  Receive Date: 20140212
  Receipt Date: 20140212
  Transmission Date: 20141002
  Serious: Yes (Hospitalization)
  Sender: FDA-Public Use
  Company Number: US-BAYER-2014-021408

PATIENT
  Age: 47 Year
  Sex: Female

DRUGS (4)
  1. YASMIN [Suspect]
     Indication: DEEP VEIN THROMBOSIS
  2. YASMIN [Suspect]
     Indication: PULMONARY EMBOLISM
  3. HYDROCODONE [Concomitant]
  4. ADVIL [Concomitant]
     Dosage: UNK
     Dates: start: 20061026

REACTIONS (2)
  - Deep vein thrombosis [None]
  - Pulmonary embolism [None]
